FAERS Safety Report 18155325 (Version 5)
Quarter: 2020Q4

REPORT INFORMATION
  Report Type: Spontaneous
  Country: JP (occurrence: JP)
  Receive Date: 20200817
  Receipt Date: 20201119
  Transmission Date: 20210113
  Serious: Yes (Other)
  Sender: FDA-Public Use
  Company Number: JP-AMGEN-JPN-20191109627

PATIENT
  Age: 40 Year
  Sex: Female

DRUGS (11)
  1. OTEZLA [Suspect]
     Active Substance: APREMILAST
     Dosage: 60 MILLIGRAM, QD
     Route: 048
     Dates: start: 20191105, end: 20191105
  2. OTEZLA [Suspect]
     Active Substance: APREMILAST
     Dosage: 20 MILLIGRAM, QD
     Route: 048
     Dates: start: 20191101, end: 20191101
  3. OTEZLA [Suspect]
     Active Substance: APREMILAST
     Dosage: 30 MILLIGRAM, QD
     Route: 048
     Dates: start: 20191102, end: 20191102
  4. OTEZLA [Suspect]
     Active Substance: APREMILAST
     Dosage: 40 MILLIGRAM, QD
     Route: 048
     Dates: start: 20191103, end: 20191103
  5. OTEZLA [Suspect]
     Active Substance: APREMILAST
     Dosage: 50 MILLIGRAM, QD
     Route: 048
     Dates: start: 20191104, end: 20191104
  6. OTEZLA [Suspect]
     Active Substance: APREMILAST
     Dosage: 30 MILLIGRAM, QD
     Route: 048
     Dates: start: 20191106, end: 20191125
  7. OTEZLA [Suspect]
     Active Substance: APREMILAST
     Dosage: 30 MILLIGRAM, QD
     Route: 048
     Dates: start: 20200116
  8. COLCHICINE. [Concomitant]
     Active Substance: COLCHICINE
     Dosage: 1 MILLIGRAM, QD
     Dates: start: 20190507, end: 20191218
  9. OTEZLA [Suspect]
     Active Substance: APREMILAST
     Indication: BEHCET^S SYNDROME
     Dosage: 10 MILLIGRAM, QD
     Route: 048
     Dates: start: 20191031, end: 20191031
  10. OTEZLA [Suspect]
     Active Substance: APREMILAST
     Dosage: 20 MILLIGRAM, QD
     Route: 048
     Dates: start: 20191126, end: 20200115
  11. COLCHICINE. [Concomitant]
     Active Substance: COLCHICINE
     Dosage: 0.5 MILLIGRAM, QD
     Dates: start: 20191219

REACTIONS (2)
  - Hepatic function abnormal [Recovered/Resolved]
  - Nausea [Recovered/Resolved]

NARRATIVE: CASE EVENT DATE: 20191106
